FAERS Safety Report 9135167 (Version 2)
Quarter: 2013Q2

REPORT INFORMATION
  Report Type: Spontaneous
  Country: US (occurrence: None)
  Receive Date: 20130205
  Receipt Date: 20130403
  Transmission Date: 20140414
  Serious: Yes (Death)
  Sender: FDA-Public Use
  Company Number: 1301-078

PATIENT
  Sex: Female

DRUGS (1)
  1. EYLEA [Suspect]
     Dates: start: 20120315

REACTIONS (2)
  - Death [None]
  - Metastases to liver [None]
